FAERS Safety Report 20735638 (Version 1)
Quarter: 2022Q2

REPORT INFORMATION
  Report Type: Other
  Country: US (occurrence: None)
  Receive Date: 20220421
  Receipt Date: 20220421
  Transmission Date: 20220720
  Serious: Yes (Other)
  Sender: FDA-Public Use
  Company Number: US-ROCHE-2920387

PATIENT
  Sex: Female

DRUGS (1)
  1. PULMOZYME [Suspect]
     Active Substance: DORNASE ALFA
     Indication: Infective pulmonary exacerbation of cystic fibrosis
     Dosage: NEBULIZE THE CONTENTS OF 1 VIAL EVERY DAY
     Route: 065

REACTIONS (2)
  - Off label use [Unknown]
  - Cardiac failure congestive [Unknown]
